FAERS Safety Report 9263592 (Version 1)
Quarter: 2013Q2

REPORT INFORMATION
  Report Type: Spontaneous
  Country: US (occurrence: None)
  Receive Date: 20130429
  Receipt Date: 20130429
  Transmission Date: 20140414
  Serious: No
  Sender: FDA-Public Use
  Company Number: None

PATIENT
  Age: 58 Year
  Sex: Female
  Weight: 86.18 kg

DRUGS (2)
  1. LEXISCAN [Suspect]
     Indication: RENAL TRANSPLANT
     Route: 042
     Dates: start: 20130418
  2. LEXISCAN [Suspect]
     Indication: PREOPERATIVE CARE
     Route: 042
     Dates: start: 20130418

REACTIONS (2)
  - Abdominal pain [None]
  - Diarrhoea [None]
